FAERS Safety Report 4714272-7 (Version None)
Quarter: 2005Q3

REPORT INFORMATION
  Report Type: 
  Country: None (occurrence: None)
  Receive Date: 20050714
  Receipt Date: 20050629
  Transmission Date: 20060218
  Serious: Yes (Disabling, Other)
  Sender: FDA-Public Use
  Company Number: JP-JNJFOC-20050605912

PATIENT
  Sex: Male

DRUGS (6)
  1. ITRIZOLE [Suspect]
     Route: 049
  2. GLIBENCLAMIDE [Concomitant]
     Route: 049
  3. VOGLIBOSE [Concomitant]
     Route: 049
  4. RANITIDINE HYDROCHLORIDE [Concomitant]
     Route: 049
  5. LOSARTAN POTASSIUM [Concomitant]
     Route: 049
  6. OMEPRAZOLE [Concomitant]
     Route: 049

REACTIONS (1)
  - RADIAL NERVE PALSY [None]
